FAERS Safety Report 6520193-X (Version None)
Quarter: 2009Q4

REPORT INFORMATION
  Report Type: 
  Country: None (occurrence: None)
  Receive Date: 20091229
  Receipt Date: 20091216
  Transmission Date: 20100525
  Serious: Yes (Hospitalization, Other)
  Sender: FDA-Public Use
  Company Number: JP-BAYER-200940449GPV

PATIENT
  Age: 73 Year
  Sex: Male

DRUGS (18)
  1. ACETAMINOPHEN [Suspect]
     Indication: GENERALISED ERYTHEMA
     Dates: start: 20070601, end: 20070701
  2. ACETAMINOPHEN [Suspect]
     Dates: start: 20070101
  3. ASPIRIN [Suspect]
     Indication: GENERALISED ERYTHEMA
     Dates: start: 20070601, end: 20070701
  4. CEFACLOR [Suspect]
     Indication: GENERALISED ERYTHEMA
     Dates: start: 20070601, end: 20070701
  5. ANTIBIOTICS [Concomitant]
     Indication: PYREXIA
  6. CYCLOPHOSPHAMIDE [Concomitant]
     Indication: ANGIOIMMUNOBLASTIC T-CELL LYMPHOMA
     Dates: start: 20070101, end: 20070101
  7. DOXORUBICIN HCL [Concomitant]
     Indication: ANGIOIMMUNOBLASTIC T-CELL LYMPHOMA
     Dates: start: 20070101, end: 20070101
  8. VINCRISTINE [Concomitant]
     Indication: ANGIOIMMUNOBLASTIC T-CELL LYMPHOMA
     Dates: start: 20070101, end: 20070101
  9. VINCRISTINE [Concomitant]
  10. DEXAMETHASONE [Concomitant]
     Indication: ANGIOIMMUNOBLASTIC T-CELL LYMPHOMA
     Dates: start: 20070101, end: 20070101
  11. METHYLPREDNISOLONE [Concomitant]
     Indication: ANGIOIMMUNOBLASTIC T-CELL LYMPHOMA
     Dates: start: 20070101, end: 20070101
  12. ETOPOSIDE [Concomitant]
     Indication: ANGIOIMMUNOBLASTIC T-CELL LYMPHOMA
     Dates: start: 20070101, end: 20070101
  13. CISPLATIN [Concomitant]
     Indication: ANGIOIMMUNOBLASTIC T-CELL LYMPHOMA
     Dates: start: 20070101, end: 20070101
  14. CYTARABINE [Concomitant]
     Indication: ANGIOIMMUNOBLASTIC T-CELL LYMPHOMA
     Dates: start: 20070101
  15. CYTARABINE [Concomitant]
  16. CYCLOSPORINE [Concomitant]
     Indication: ANGIOIMMUNOBLASTIC T-CELL LYMPHOMA
     Route: 048
  17. PREDNISOLONE [Concomitant]
     Indication: ANGIOIMMUNOBLASTIC T-CELL LYMPHOMA
  18. METHOTREXATE [Concomitant]
     Indication: ANGIOIMMUNOBLASTIC T-CELL LYMPHOMA

REACTIONS (1)
  - AGRANULOCYTOSIS [None]
